FAERS Safety Report 6929743-2 (Version None)
Quarter: 2010Q3

REPORT INFORMATION
  Report Type: 
  Country: None (occurrence: None)
  Receive Date: 20100818
  Receipt Date: 20100805
  Transmission Date: 20110219
  Serious: Yes (Other)
  Sender: FDA-Public Use
  Company Number: ES-SANOFI-AVENTIS-2010SA046162

PATIENT
  Age: 71 Year
  Sex: Male

DRUGS (4)
  1. LEFLUNOMIDE [Suspect]
     Route: 048
     Dates: start: 20090418
  2. METOTREXATO [Concomitant]
     Route: 030
     Dates: start: 20071101
  3. ZOLPIDEM [Concomitant]
     Indication: INSOMNIA
     Route: 048
     Dates: start: 20090418
  4. BESITRAN [Concomitant]
     Indication: DEPRESSION
     Route: 048
     Dates: start: 20070927

REACTIONS (2)
  - PARAESTHESIA [None]
  - TACHYCARDIA [None]
